FAERS Safety Report 13540145 (Version 3)
Quarter: 2017Q3

REPORT INFORMATION
  Report Type: Spontaneous
  Country: JP (occurrence: JP)
  Receive Date: 20170512
  Receipt Date: 20170915
  Transmission Date: 20171127
  Serious: Yes (Hospitalization, Other)
  Sender: FDA-Public Use
  Company Number: JP-BRISTOL-MYERS SQUIBB COMPANY-BMS-2017-041715

PATIENT
  Age: 52 Year
  Sex: Male

DRUGS (1)
  1. NIVOLUMAB [Suspect]
     Active Substance: NIVOLUMAB
     Indication: NON-SMALL CELL LUNG CANCER RECURRENT
     Dosage: 190 MG, UNK
     Route: 042
     Dates: start: 20161118

REACTIONS (11)
  - Rash maculo-papular [Unknown]
  - C-reactive protein increased [Unknown]
  - Decreased appetite [Unknown]
  - Anaemia [Unknown]
  - Hypoalbuminaemia [Unknown]
  - Pyrexia [Recovered/Resolved]
  - White blood cell count increased [Unknown]
  - Blood bilirubin increased [Unknown]
  - Erythema [Unknown]
  - Swelling [Unknown]
  - Wound infection [Unknown]

NARRATIVE: CASE EVENT DATE: 20161121
